FAERS Safety Report 6098147-X (Version None)
Quarter: 2009Q1

REPORT INFORMATION
  Report Type: 
  Country: None (occurrence: None)
  Receive Date: 20090227
  Receipt Date: 20090227
  Transmission Date: 20090719
  Serious: No
  Sender: FDA-Public Use
  Company Number: US-B.I. PHARMACEUTICALS,INC./RIDGEFIELD-2008-BP-18545BP

PATIENT
  Sex: Female

DRUGS (7)
  1. SPIRIVA [Suspect]
     Indication: CHRONIC OBSTRUCTIVE PULMONARY DISEASE
     Dosage: 18MCG
     Route: 055
  2. FOSIMAX PLUS [Concomitant]
     Indication: OSTEOPENIA
     Route: 048
     Dates: start: 19980101
  3. IMURAN [Concomitant]
     Indication: COLITIS ULCERATIVE
     Route: 048
     Dates: start: 19780101
  4. CARDIZEM LA [Concomitant]
     Indication: HYPERTENSION
     Route: 048
     Dates: start: 20010101
  5. HYZAAR LA [Concomitant]
     Indication: HYPERTENSION
     Route: 048
     Dates: start: 20010101
  6. PREVACID [Concomitant]
     Indication: GASTROOESOPHAGEAL REFLUX DISEASE
     Route: 048
     Dates: start: 19980101
  7. CORTISONE ACETATE [Concomitant]
     Indication: ADRENAL INSUFFICIENCY
     Route: 048
     Dates: start: 20030101

REACTIONS (4)
  - DRY EYE [None]
  - DRY MOUTH [None]
  - FOREIGN BODY TRAUMA [None]
  - OCULAR HYPERAEMIA [None]
